FAERS Safety Report 9898652 (Version 2)
Quarter: 2014Q1

REPORT INFORMATION
  Report Type: Spontaneous
  Country: US (occurrence: US)
  Receive Date: 20140214
  Receipt Date: 20140214
  Transmission Date: 20141002
  Serious: No
  Sender: FDA-Public Use
  Company Number: US-GILEAD-2011-0043690

PATIENT
  Age: 50 Year
  Sex: Female

DRUGS (6)
  1. LETAIRIS [Suspect]
     Indication: PULMONARY ARTERIAL HYPERTENSION
     Route: 048
     Dates: start: 20110830
  2. ADCIRCA [Suspect]
  3. TYVASO [Suspect]
     Indication: PULMONARY ARTERIAL HYPERTENSION
     Dosage: 216 ?G, UNK
     Dates: start: 20110316
  4. TYVASO [Suspect]
     Indication: PULMONARY ARTERIAL HYPERTENSION
  5. REVATIO [Concomitant]
  6. TRACLEER [Concomitant]

REACTIONS (3)
  - Migraine [Unknown]
  - Dizziness [Unknown]
  - Epistaxis [Unknown]
